FAERS Safety Report 18911189 (Version 1)
Quarter: 2021Q1

REPORT INFORMATION
  Report Type: Spontaneous
  Country: GB (occurrence: GB)
  Receive Date: 20210218
  Receipt Date: 20210218
  Transmission Date: 20210420
  Serious: Yes (Other)
  Sender: FDA-Public Use
  Company Number: GB-PERRIGO-21GB002021

PATIENT

DRUGS (5)
  1. NIQUITIN [Suspect]
     Active Substance: NICOTINE
     Indication: SMOKING CESSATION THERAPY
     Dosage: UNK
     Route: 065
     Dates: start: 2014, end: 2014
  2. NIQUITIN [Suspect]
     Active Substance: NICOTINE
     Dosage: UNK
     Route: 065
     Dates: start: 2016, end: 2016
  3. NIQUITIN [Suspect]
     Active Substance: NICOTINE
     Dosage: UNK
     Route: 065
     Dates: start: 2017, end: 2017
  4. NIQUITIN [Suspect]
     Active Substance: NICOTINE
     Indication: SMOKING CESSATION THERAPY
     Dosage: UNK
     Route: 065
     Dates: start: 2013, end: 2013
  5. NIQUITIN [Suspect]
     Active Substance: NICOTINE
     Indication: PRODUCT USED FOR UNKNOWN INDICATION
     Dosage: UNK
     Route: 065
     Dates: start: 2018

REACTIONS (2)
  - Incorrect product administration duration [Unknown]
  - Drug dependence [Unknown]
